FAERS Safety Report 6709100-4 (Version None)
Quarter: 2010Q2

REPORT INFORMATION
  Report Type: 
  Country: None (occurrence: None)
  Receive Date: 20100504
  Receipt Date: 20091115
  Transmission Date: 20101027
  Serious: Yes (Other)
  Sender: FDA-Public Use
  Company Number: RU-BAYER-200939554GPV

PATIENT
  Age: 22 Year
  Sex: Female

DRUGS (2)
  1. BETAFERON [Suspect]
     Indication: MULTIPLE SCLEROSIS
     Route: 058
  2. BETAFERON [Suspect]
     Route: 058

REACTIONS (2)
  - CHILLS [None]
  - SYNCOPE [None]
